FAERS Safety Report 10087294 (Version 2)
Quarter: 2014Q2

REPORT INFORMATION
  Report Type: Report from Study
  Country: JP (occurrence: JP)
  Receive Date: 20140418
  Receipt Date: 20140610
  Transmission Date: 20141212
  Serious: Yes (Disabling)
  Sender: FDA-Public Use
  Company Number: JP-SPECTRUM PHARMACEUTICALS, INC.-14-Z-JP-00049

PATIENT
  Age: 61 Year
  Sex: Male
  Weight: 70 kg

DRUGS (9)
  1. ZEVALIN [Suspect]
     Indication: PRODUCT USED FOR UNKNOWN INDICATION
     Dosage: UNK UNK, SINGLE
     Route: 065
     Dates: start: 20081014, end: 20081014
  2. ZEVALIN [Suspect]
     Dosage: UNK UNK, SINGLE
     Route: 065
     Dates: start: 20081007, end: 20081007
  3. RITUXIMAB [Suspect]
     Indication: PRODUCT USED FOR UNKNOWN INDICATION
     Dosage: UNK UNK, SINGLE
     Route: 065
  4. FLOMOX [Suspect]
     Indication: NASOPHARYNGITIS
     Dosage: 100 MG, TID
     Route: 048
     Dates: start: 20130709
  5. SOLANTAL [Concomitant]
     Indication: PRODUCT USED FOR UNKNOWN INDICATION
     Route: 048
     Dates: start: 20130709
  6. TIPEPIDINE HIBENZATE [Concomitant]
     Indication: PRODUCT USED FOR UNKNOWN INDICATION
     Route: 065
     Dates: start: 20130709
  7. TAVEGYL                            /00137201/ [Concomitant]
     Indication: PRODUCT USED FOR UNKNOWN INDICATION
     Route: 065
     Dates: start: 20130709
  8. LOXOPROFEN SODIUM [Concomitant]
     Indication: PRODUCT USED FOR UNKNOWN INDICATION
     Route: 065
     Dates: start: 20130709
  9. CEPHARANTHINE [Concomitant]
     Indication: PRODUCT USED FOR UNKNOWN INDICATION
     Route: 065
     Dates: start: 20130709

REACTIONS (5)
  - Autoimmune haemolytic anaemia [Recovered/Resolved]
  - Urine analysis abnormal [Unknown]
  - Palpitations [Unknown]
  - Blood lactate dehydrogenase abnormal [Recovered/Resolved]
  - Haemoglobin abnormal [Recovered/Resolved]
